FAERS Safety Report 17971432 (Version 1)
Quarter: 2020Q3

REPORT INFORMATION
  Report Type: Spontaneous
  Country: BD (occurrence: BD)
  Receive Date: 20200701
  Receipt Date: 20200701
  Transmission Date: 20201103
  Serious: Yes (Other)
  Sender: FDA-Public Use
  Company Number: NVSC2020BD166333

PATIENT
  Age: 30 Year
  Sex: Male
  Weight: 73 kg

DRUGS (10)
  1. CRILOMUS [Suspect]
     Active Substance: TACROLIMUS
     Indication: RENAL TRANSPLANT
     Dosage: 1 MG, BID
     Route: 048
     Dates: start: 202004, end: 20200602
  2. LOSECTIL [Concomitant]
     Indication: GASTRIC DISORDER
     Dosage: 20 MG, QD
     Route: 065
     Dates: start: 2014
  3. LINAGLIPTIN [Concomitant]
     Active Substance: LINAGLIPTIN
     Indication: TYPE 2 DIABETES MELLITUS
     Dosage: 5 MG, UNKNOWN
     Route: 065
     Dates: start: 2016
  4. MYCOPHENOLATE MOFETIL. [Concomitant]
     Active Substance: MYCOPHENOLATE MOFETIL
     Indication: RENAL TRANSPLANT
     Dosage: 500 MG, QD
     Route: 065
     Dates: start: 202004, end: 202006
  5. OMIDON [Concomitant]
     Indication: VOMITING
     Dosage: 10 MG
     Route: 065
  6. ALPHAPRESS [Concomitant]
     Indication: HYPERTENSION
     Dosage: 2 MG, QD
     Route: 065
  7. SANDOCAL?D [Concomitant]
     Indication: CALCIUM DEFICIENCY
     Dosage: 500 MG, QD
     Route: 048
  8. ABETIS [Concomitant]
     Indication: HYPERTENSION
     Dosage: 20 MG, QD
     Route: 065
  9. CRILOMUS [Suspect]
     Active Substance: TACROLIMUS
     Dosage: 0.5 MG, BID
     Route: 048
     Dates: start: 202004, end: 20200602
  10. INSUL R [Concomitant]
     Indication: TYPE 2 DIABETES MELLITUS
     Dosage: UNK
     Route: 065

REACTIONS (2)
  - Ageusia [Recovered/Resolved]
  - Blood creatinine increased [Unknown]
